FAERS Safety Report 22245721 (Version 1)
Quarter: 2023Q2

REPORT INFORMATION
  Report Type: Spontaneous
  Country: FR (occurrence: FR)
  Receive Date: 20230424
  Receipt Date: 20230424
  Transmission Date: 20230722
  Serious: Yes (Life-Threatening, Hospitalization)
  Sender: FDA-Public Use
  Company Number: None

PATIENT
  Age: 74 Year
  Sex: Male
  Weight: 60.4 kg

DRUGS (6)
  1. PREDNISONE [Suspect]
     Active Substance: PREDNISONE
     Indication: Haemolytic anaemia
     Dosage: 60 MG, AND 80 MG FROM FEBRUARY 18 TO 20
     Route: 048
     Dates: start: 20230211, end: 20230220
  2. DEXAMETHASONE [Suspect]
     Active Substance: DEXAMETHASONE
     Indication: Haemolytic anaemia
     Dosage: 40 MILLIGRAM
     Route: 042
     Dates: start: 20230221, end: 20230223
  3. ELIQUIS [Suspect]
     Active Substance: APIXABAN
     Indication: Atrial fibrillation
     Dosage: 2 DF, 5 MG MORNING AND EVENING
     Route: 048
     Dates: end: 20230226
  4. TRIMETHOPRIM [Concomitant]
     Active Substance: TRIMETHOPRIM
     Indication: Urinary tract infection
     Dosage: 2 DOSAGE FORM
     Route: 048
     Dates: start: 20230220
  5. RITUXIMAB [Concomitant]
     Active Substance: RITUXIMAB
     Indication: Haemolytic anaemia
     Dosage: 375 MILLIGRAM/SQ. METER
     Route: 042
     Dates: start: 20230222
  6. SULFAMETHOXAZOLE [Concomitant]
     Active Substance: SULFAMETHOXAZOLE
     Indication: Urinary tract infection
     Dosage: 2 DOSAGE FORM
     Route: 048
     Dates: start: 20230220

REACTIONS (1)
  - Orbital haemorrhage [Recovering/Resolving]

NARRATIVE: CASE EVENT DATE: 20230226
